FAERS Safety Report 24806032 (Version 1)
Quarter: 2025Q1

REPORT INFORMATION
  Report Type: Spontaneous
  Country: US (occurrence: US)
  Receive Date: 20250103
  Receipt Date: 20250103
  Transmission Date: 20250409
  Serious: No
  Sender: PFIZER
  Company Number: US-PFIZER INC-202400334731

PATIENT
  Age: 57 Year
  Sex: Female
  Weight: 47.6 kg

DRUGS (1)
  1. VANCOMYCIN HYDROCHLORIDE [Suspect]
     Active Substance: VANCOMYCIN HYDROCHLORIDE

REACTIONS (3)
  - Blood blister [Unknown]
  - Gastrointestinal disorder [Unknown]
  - Urticaria [Unknown]
